FAERS Safety Report 4449568-X (Version None)
Quarter: 2004Q3

REPORT INFORMATION
  Report Type: 
  Country: None (occurrence: None)
  Receive Date: 20040913
  Receipt Date: 20040826
  Transmission Date: 20050211
  Serious: Yes (Hospitalization)
  Sender: FDA-Public Use
  Company Number: 2004-DE-04683GL

PATIENT
  Sex: Female

DRUGS (3)
  1. TELMISARTAN (TELMISARTAN) (UNK) (TELMISARTAN) [Suspect]
     Indication: DRUG USE FOR UNKNOWN INDICATION
     Dates: start: 20040701
  2. DILTIAZEM HYDROCHLORIDE [Concomitant]
  3. ASPIRIN [Concomitant]

REACTIONS (1)
  - CHOREA [None]
